FAERS Safety Report 9144391 (Version 2)
Quarter: 2013Q2

REPORT INFORMATION
  Report Type: Spontaneous
  Country: US (occurrence: US)
  Receive Date: 20130306
  Receipt Date: 20130508
  Transmission Date: 20140414
  Serious: No
  Sender: FDA-Public Use
  Company Number: US-009507513-1302USA013438

PATIENT
  Sex: Male

DRUGS (4)
  1. MK-0000 [Suspect]
     Dosage: 1 TABLET TAKEN ONCE PER DAY
     Route: 048
     Dates: start: 201012
  2. GLIPIZIDE [Concomitant]
  3. ATORVASTATIN [Concomitant]
  4. RAMIPRIL [Concomitant]

REACTIONS (3)
  - Medication residue present [Unknown]
  - No adverse event [Unknown]
  - Product quality issue [Unknown]
